FAERS Safety Report 12146726 (Version 1)
Quarter: 2016Q1

REPORT INFORMATION
  Report Type: Spontaneous
  Country: US (occurrence: US)
  Receive Date: 20160304
  Receipt Date: 20160304
  Transmission Date: 20160526
  Serious: No
  Sender: FDA-Public Use
  Company Number: US-GLAXOSMITHKLINE-US2016029415

PATIENT
  Age: 34 Year
  Sex: Female

DRUGS (4)
  1. SYNTHROID [Concomitant]
     Active Substance: LEVOTHYROXINE SODIUM
  2. ASPIRIN (BABY) [Concomitant]
     Active Substance: ASPIRIN
  3. LAMICTAL XR [Suspect]
     Active Substance: LAMOTRIGINE
     Indication: EPILEPSY
     Dosage: 200 MG, QD
     Route: 048
  4. LISINOPRIL. [Concomitant]
     Active Substance: LISINOPRIL

REACTIONS (4)
  - Blister [Recovering/Resolving]
  - Dyspnoea [Recovering/Resolving]
  - Emergency care [Unknown]
  - Tonsillitis [Recovering/Resolving]

NARRATIVE: CASE EVENT DATE: 201602
